FAERS Safety Report 22178371 (Version 3)
Quarter: 2023Q2

REPORT INFORMATION
  Report Type: Report from Study
  Country: ES (occurrence: ES)
  Receive Date: 20230405
  Receipt Date: 20230420
  Transmission Date: 20230722
  Serious: Yes (Death, Other)
  Sender: FDA-Public Use
  Company Number: ES-TAKEDA-2023TUS033800

PATIENT
  Age: 64 Year
  Sex: Female

DRUGS (1)
  1. MARIBAVIR [Suspect]
     Active Substance: MARIBAVIR
     Indication: Cytomegalovirus infection
     Dosage: 400 MILLIGRAM, Q12H
     Route: 065
     Dates: start: 20230324

REACTIONS (3)
  - General physical health deterioration [Fatal]
  - Rectal haemorrhage [Fatal]
  - Renal failure [Fatal]
